FAERS Safety Report 11772171 (Version 1)
Quarter: 2015Q4

REPORT INFORMATION
  Report Type: Spontaneous
  Country: CA (occurrence: CA)
  Receive Date: 20151124
  Receipt Date: 20151124
  Transmission Date: 20160304
  Serious: Yes (Other)
  Sender: FDA-Public Use
  Company Number: CA-TEVA-610785ACC

PATIENT
  Age: 66 Year

DRUGS (11)
  1. POTASSIUM [Concomitant]
     Active Substance: POTASSIUM
  2. HYDROMORPH CONTIN [Concomitant]
     Active Substance: HYDROMORPHONE
  3. CLOXACILLIN FOR INJECTION FOR I.V. USE ONLY [Suspect]
     Active Substance: CLOXACILLIN
     Indication: DEVICE RELATED INFECTION
     Dosage: 12 GRAM DAILY;
     Route: 042
  4. ASA [Concomitant]
     Active Substance: ASPIRIN
  5. FUROSEMIDE. [Concomitant]
     Active Substance: FUROSEMIDE
  6. COVERSYL PLUS [Concomitant]
     Active Substance: INDAPAMIDE\PERINDOPRIL
  7. CODEINE [Concomitant]
     Active Substance: CODEINE
  8. CLOXACILLIN FOR INJECTION FOR I.V. USE ONLY [Suspect]
     Active Substance: CLOXACILLIN
     Indication: BACTERIAL INFECTION
  9. CLOXACILLIN FOR INJECTION FOR IV INFUSION ONLY [Suspect]
     Active Substance: CLOXACILLIN
     Route: 065
  10. INSULIN [Concomitant]
     Active Substance: INSULIN NOS
  11. VIMOVO [Concomitant]
     Active Substance: ESOMEPRAZOLE MAGNESIUM\NAPROXEN

REACTIONS (1)
  - Renal failure [Recovered/Resolved]
